FAERS Safety Report 11794924 (Version 2)
Quarter: 2016Q1

REPORT INFORMATION
  Report Type: Spontaneous
  Country: DE (occurrence: DE)
  Receive Date: 20151202
  Receipt Date: 20160303
  Transmission Date: 20160525
  Serious: Yes (Other)
  Sender: FDA-Public Use
  Company Number: DE-TEVA-612317GER

PATIENT
  Age: 80 Year
  Sex: Female

DRUGS (1)
  1. NITROFURANTOIN-RATIOPHARM 100 MG RETARDKAPSELN [Suspect]
     Active Substance: NITROFURANTOIN
     Indication: CYSTITIS NONINFECTIVE
     Dates: start: 20151120

REACTIONS (1)
  - Haematochezia [Recovered/Resolved]

NARRATIVE: CASE EVENT DATE: 20151120
